FAERS Safety Report 14470428 (Version 1)
Quarter: 2018Q1

REPORT INFORMATION
  Report Type: Other
  Country: GB (occurrence: GB)
  Receive Date: 20180131
  Receipt Date: 20180131
  Transmission Date: 20180509
  Serious: Yes (Hospitalization)
  Sender: FDA-Public Use
  Company Number: GB-GLENMARK PHARMACEUTICALS-2017GMK031396

PATIENT

DRUGS (3)
  1. CLOZARIL [Suspect]
     Active Substance: CLOZAPINE
     Indication: SCHIZOPHRENIA
     Dosage: 250 MG, QD
     Route: 048
     Dates: start: 19910801, end: 20171226
  2. LITHIUM. [Suspect]
     Active Substance: LITHIUM
     Indication: PRODUCT USED FOR UNKNOWN INDICATION
     Dosage: 400 MG, QD (MANE)
     Route: 048
     Dates: start: 2016, end: 20171226
  3. CLOZARIL [Suspect]
     Active Substance: CLOZAPINE
     Dosage: 75 MG, BID
     Route: 048
     Dates: start: 20171230

REACTIONS (6)
  - Agitation [Recovered/Resolved with Sequelae]
  - Loss of consciousness [Recovered/Resolved]
  - Somnolence [Recovered/Resolved with Sequelae]
  - Confusional state [Recovered/Resolved with Sequelae]
  - Acute kidney injury [Recovering/Resolving]
  - Renal neoplasm [Unknown]

NARRATIVE: CASE EVENT DATE: 2017
